FAERS Safety Report 7687098-2 (Version None)
Quarter: 2011Q3

REPORT INFORMATION
  Report Type: 
  Country: None (occurrence: None)
  Receive Date: 20110816
  Receipt Date: 20110805
  Transmission Date: 20111222
  Serious: Yes (Other)
  Sender: FDA-Public Use
  Company Number: PHEH2009US04395

PATIENT
  Sex: Male
  Weight: 98.413 kg

DRUGS (8)
  1. COUMADIN [Concomitant]
  2. NEXIUM [Concomitant]
  3. REVLIMID [Concomitant]
  4. ZOMETA [Suspect]
     Indication: FRACTURE
  5. ZOMETA [Suspect]
     Indication: NEOPLASM MALIGNANT
     Dosage: 4 MG, QMO
     Dates: start: 20020814
  6. ZOMETA [Suspect]
     Indication: BONE LOSS
     Dates: start: 20030101, end: 20070801
  7. ZOMETA [Suspect]
     Indication: OSTEOPOROSIS
  8. LYRICA [Concomitant]

REACTIONS (62)
  - SEBORRHOEIC DERMATITIS [None]
  - THROMBOCYTOPENIA [None]
  - HYPOXIA [None]
  - HIATUS HERNIA [None]
  - MELAENA [None]
  - PNEUMONIA [None]
  - ATELECTASIS [None]
  - OBSTRUCTIVE AIRWAYS DISORDER [None]
  - PLEURAL EFFUSION [None]
  - IRON DEFICIENCY ANAEMIA [None]
  - TREMOR [None]
  - JAW FRACTURE [None]
  - RIB FRACTURE [None]
  - INTERSTITIAL LUNG DISEASE [None]
  - CEREBRAL ATROPHY [None]
  - CARDIOMEGALY [None]
  - RENAL FAILURE ACUTE [None]
  - CARDIAC FAILURE CONGESTIVE [None]
  - UMBILICAL HERNIA [None]
  - BALANITIS [None]
  - HERPES VIRUS INFECTION [None]
  - ACUTE PRERENAL FAILURE [None]
  - EXOPHTHALMOS [None]
  - EXPOSED BONE IN JAW [None]
  - PAIN [None]
  - ACUTE SINUSITIS [None]
  - ASTHMA [None]
  - SPONDYLOLISTHESIS [None]
  - CHRONIC OBSTRUCTIVE PULMONARY DISEASE [None]
  - BENIGN PROSTATIC HYPERPLASIA [None]
  - LUNG NEOPLASM [None]
  - COUGH [None]
  - BRONCHIOLITIS [None]
  - HEPATIC STEATOSIS [None]
  - HYPOTHYROIDISM [None]
  - TRICUSPID VALVE INCOMPETENCE [None]
  - ATRIAL FIBRILLATION [None]
  - CHRONIC SINUSITIS [None]
  - DYSPNOEA [None]
  - LUNG INFILTRATION [None]
  - DERMAL CYST [None]
  - CHOLELITHIASIS [None]
  - FALL [None]
  - SEPSIS [None]
  - ANXIETY [None]
  - DISABILITY [None]
  - BARRETT'S OESOPHAGUS [None]
  - BRONCHIECTASIS [None]
  - SLEEP APNOEA SYNDROME [None]
  - CAROTID ARTERY STENOSIS [None]
  - OSTEONECROSIS OF JAW [None]
  - INJURY [None]
  - CORONARY ARTERY DISEASE [None]
  - PULMONARY OEDEMA [None]
  - HYPERTENSION [None]
  - SKIN LESION [None]
  - PARKINSON'S DISEASE [None]
  - SYNCOPE [None]
  - EPISTAXIS [None]
  - METASTASES TO BONE [None]
  - HYPOKALAEMIA [None]
  - MITRAL VALVE INCOMPETENCE [None]
